FAERS Safety Report 4377497-9 (Version None)
Quarter: 2004Q2

REPORT INFORMATION
  Report Type: 
  Country: None (occurrence: None)
  Receive Date: 20040602
  Receipt Date: 20031001
  Transmission Date: 20050107
  Serious: Yes (Death)
  Sender: FDA-Public Use
  Company Number: NSADSS2001023978

PATIENT
  Age: 11 Year
  Sex: Female
  Weight: 18.5975 kg

DRUGS (1)
  1. PROPULSID [Suspect]
     Indication: GASTROOESOPHAGEAL REFLUX DISEASE
     Dosage: 3 IN 1 DAY
     Dates: start: 19920101, end: 19980307

REACTIONS (1)
  - CARDIAC FAILURE [None]
